FAERS Safety Report 4279459-9 (Version None)
Quarter: 2004Q1

REPORT INFORMATION
  Report Type: 
  Country: None (occurrence: None)
  Receive Date: 20040127
  Receipt Date: 20031217
  Transmission Date: 20041129
  Serious: Yes (Other)
  Sender: FDA-Public Use
  Company Number: US-GLAXOSMITHKLINE-A0443505A

PATIENT
  Age: 65 Year
  Sex: Male

DRUGS (4)
  1. AVANDIA [Suspect]
     Indication: DIABETES MELLITUS NON-INSULIN-DEPENDENT
     Dosage: 4MG TWICE PER DAY
     Route: 048
  2. GLUCOPHAGE [Concomitant]
  3. GLUCOTROL [Concomitant]
  4. COREG [Concomitant]

REACTIONS (5)
  - ASCITES [None]
  - CARDIAC FAILURE CONGESTIVE [None]
  - HEPATIC ENZYME INCREASED [None]
  - RENAL IMPAIRMENT [None]
  - WEIGHT INCREASED [None]
